FAERS Safety Report 15253365 (Version 2)
Quarter: 2018Q3

REPORT INFORMATION
  Report Type: Spontaneous
  Country: US (occurrence: US)
  Receive Date: 20180808
  Receipt Date: 20180821
  Transmission Date: 20181010
  Serious: Yes (Other)
  Sender: FDA-Public Use
  Company Number: US-TEVA-2018-US-937954

PATIENT
  Age: 53 Year
  Sex: Male

DRUGS (2)
  1. PREDNISONE. [Concomitant]
     Active Substance: PREDNISONE
     Route: 048
  2. SALBUTAMOL [Suspect]
     Active Substance: ALBUTEROL
     Indication: CHRONIC OBSTRUCTIVE PULMONARY DISEASE
     Dosage: EXCESSIVE USE OF HIS SALBUTAMOL INHALER 4?6 TIMES A DAY FOR THE LAST SIX DAYS
     Route: 055

REACTIONS (1)
  - Lactic acidosis [Recovered/Resolved]
